FAERS Safety Report 8609581-5 (Version None)
Quarter: 2012Q3

REPORT INFORMATION
  Report Type: 
  Country: None (occurrence: None)
  Receive Date: 20120821
  Receipt Date: 20120815
  Transmission Date: 20120928
  Serious: No
  Sender: FDA-Public Use
  Company Number: US-PFIZER INC-2012200895

PATIENT
  Age: 20 Year
  Sex: Male
  Weight: 92.971 kg

DRUGS (4)
  1. LYRICA [Suspect]
     Indication: ANXIETY
  2. SEROQUEL [Concomitant]
     Indication: MOOD ALTERED
     Dosage: UNK
  3. NEURONTIN [Suspect]
     Indication: MOOD ALTERED
     Dosage: 300 MG, AS NEEDED
     Dates: start: 20000101
  4. LYRICA [Suspect]
     Indication: NEURALGIA
     Dosage: 300 MG, 2X/DAY
     Dates: start: 20050101

REACTIONS (2)
  - OFF LABEL USE [None]
  - BRONCHITIS [None]
